FAERS Safety Report 6262846-7 (Version None)
Quarter: 2009Q3

REPORT INFORMATION
  Report Type: 
  Country: None (occurrence: None)
  Receive Date: 20090708
  Receipt Date: 20090629
  Transmission Date: 20100115
  Serious: Yes (Other)
  Sender: FDA-Public Use
  Company Number: CHPA2009US14497

PATIENT
  Sex: Female

DRUGS (2)
  1. MAALOX ANTACID TABLETS - UNKNOWN (NCH)(UNKNOWN) TABLET [Suspect]
     Indication: FLATULENCE
     Dosage: 1 DF, ONCE/SINGLE, ORAL; 1 DF, BID, ORAL
     Route: 048
     Dates: start: 20090627, end: 20090627
  2. MAALOX ANTACID TABLETS - UNKNOWN (NCH)(UNKNOWN) TABLET [Suspect]
     Indication: FLATULENCE
     Dosage: 1 DF, ONCE/SINGLE, ORAL; 1 DF, BID, ORAL
     Route: 048
     Dates: start: 20090628, end: 20090628

REACTIONS (2)
  - DRUG EXPOSURE DURING PREGNANCY [None]
  - HAEMORRHAGE [None]
